FAERS Safety Report 25947278 (Version 1)
Quarter: 2025Q4

REPORT INFORMATION
  Report Type: Spontaneous
  Country: US (occurrence: US)
  Receive Date: 20251022
  Receipt Date: 20251022
  Transmission Date: 20260118
  Serious: No
  Sender: ASTELLAS
  Company Number: US-ASTELLAS-2025-AER-057079

PATIENT
  Age: 92 Year
  Sex: Female

DRUGS (3)
  1. VEOZAH [Suspect]
     Active Substance: FEZOLINETANT
     Indication: Autonomic neuropathy
     Route: 065
  2. AMLODIPINE [Concomitant]
     Active Substance: AMLODIPINE BESYLATE
     Indication: Product used for unknown indication
     Route: 065
  3. VALSARTAN [Concomitant]
     Active Substance: VALSARTAN
     Indication: Product used for unknown indication
     Route: 065

REACTIONS (9)
  - Blood pressure increased [Unknown]
  - Nausea [Unknown]
  - Pain [Unknown]
  - Erythema [Unknown]
  - Joint swelling [Unknown]
  - Fatigue [Unknown]
  - Asthenia [Unknown]
  - Feeding disorder [Unknown]
  - Off label use [Unknown]
